FAERS Safety Report 17245047 (Version 1)
Quarter: 2020Q1

REPORT INFORMATION
  Report Type: Report from Study
  Country: CN (occurrence: CN)
  Receive Date: 20200108
  Receipt Date: 20200108
  Transmission Date: 20200409
  Serious: Yes (Other)
  Sender: FDA-Public Use
  Company Number: CN-ROCHE-2509182

PATIENT

DRUGS (4)
  1. BEVACIZUMAB. [Suspect]
     Active Substance: BEVACIZUMAB
     Indication: NON-SMALL CELL LUNG CANCER
     Dosage: 20 ML/VIAL
     Route: 042
  2. DOCETAXEL. [Suspect]
     Active Substance: DOCETAXEL
     Indication: NON-SMALL CELL LUNG CANCER
     Dosage: 20 MG/VIAL
     Route: 041
  3. KANG AI ZHU SHE YE [Suspect]
     Active Substance: HERBALS
     Indication: NON-SMALL CELL LUNG CANCER
     Dosage: DF=INJECTION?20 ML/VIAL
     Route: 041
  4. CISPLATIN. [Suspect]
     Active Substance: CISPLATIN
     Indication: NON-SMALL CELL LUNG CANCER
     Dosage: 75 MG/M2 BY INTRAVENOUS DRIP FOR 2 - 6 H IN TWO EQUAL DIVIDED DOSES FOR TWO CONSECUTIVE DAYS.?10 MG/
     Route: 041

REACTIONS (7)
  - Renal injury [Unknown]
  - Diarrhoea [Unknown]
  - Nausea [Unknown]
  - Bone marrow failure [Unknown]
  - Vomiting [Unknown]
  - Mucosal inflammation [Unknown]
  - Liver injury [Unknown]
